FAERS Safety Report 10040670 (Version 1)
Quarter: 2014Q1

REPORT INFORMATION
  Report Type: Spontaneous
  Country: GB (occurrence: GB)
  Receive Date: 20140327
  Receipt Date: 20140327
  Transmission Date: 20141002
  Serious: Yes (Death, Other)
  Sender: FDA-Public Use
  Company Number: GB-ROCHE-1370779

PATIENT
  Age: 66 Year
  Sex: Female

DRUGS (7)
  1. AVASTIN [Suspect]
     Indication: COLORECTAL CANCER METASTATIC
     Route: 065
  2. XELODA [Suspect]
     Indication: METASTASIS
     Route: 048
     Dates: start: 20090119, end: 20090221
  3. OXALIPLATIN [Suspect]
     Indication: COLORECTAL CANCER METASTATIC
     Route: 042
  4. BUSCOPAN [Concomitant]
  5. CEFUROXIME [Concomitant]
     Indication: PYREXIA
  6. MORPHINE [Concomitant]
  7. NEUPOGEN [Concomitant]
     Indication: NEUTROPENIA
     Route: 065

REACTIONS (3)
  - Colitis ischaemic [Fatal]
  - Diarrhoea [Unknown]
  - Migraine [Not Recovered/Not Resolved]
